FAERS Safety Report 8325570-2 (Version None)
Quarter: 2012Q2

REPORT INFORMATION
  Report Type: 
  Country: None (occurrence: None)
  Receive Date: 20120501
  Receipt Date: 20120418
  Transmission Date: 20120825
  Serious: Yes (Hospitalization, Other)
  Sender: FDA-Public Use
  Company Number: CN-JNJFOC-20120413606

PATIENT
  Sex: Female

DRUGS (2)
  1. REMICADE [Suspect]
     Indication: COLITIS ULCERATIVE
     Dosage: ONCE IN 4 (UNITS UNSPECIFIED)
     Route: 042
     Dates: start: 20110901, end: 20110901
  2. AZATHIOPRINE [Suspect]
     Indication: PRODUCT USED FOR UNKNOWN INDICATION
     Route: 065

REACTIONS (3)
  - CRYPTOCOCCOSIS [None]
  - CHILLS [None]
  - DRUG INEFFECTIVE [None]
